FAERS Safety Report 21021785 (Version 3)
Quarter: 2022Q4

REPORT INFORMATION
  Report Type: Other
  Country: JP (occurrence: JP)
  Receive Date: 20220629
  Receipt Date: 20221125
  Transmission Date: 20230113
  Serious: Yes (Hospitalization)
  Sender: FDA-Public Use
  Company Number: JP-CHUGAI-2022000168

PATIENT
  Age: 84 Year
  Sex: Male
  Weight: 47 kg

DRUGS (5)
  1. POLATUZUMAB VEDOTIN [Suspect]
     Active Substance: POLATUZUMAB VEDOTIN
     Indication: Diffuse large B-cell lymphoma
     Route: 041
     Dates: start: 20211117, end: 20220228
  2. BENDAMUSTINE HYDROCHLORIDE [Suspect]
     Active Substance: BENDAMUSTINE HYDROCHLORIDE
     Indication: Diffuse large B-cell lymphoma
     Route: 041
     Dates: start: 20211117, end: 20220301
  3. RITUXIMAB [Suspect]
     Active Substance: RITUXIMAB
     Indication: Diffuse large B-cell lymphoma
     Route: 041
     Dates: start: 20211116, end: 20220228
  4. BARACLUDE [Concomitant]
     Active Substance: ENTECAVIR
     Indication: Infection prophylaxis
     Dosage: 0.5 MILLIGRAM
     Route: 065
     Dates: start: 20211109
  5. ZOVIRAX [Concomitant]
     Active Substance: ACYCLOVIR
     Indication: Infection prophylaxis
     Dosage: 200 MILLIGRAM
     Route: 065
     Dates: start: 20211127, end: 20211229

REACTIONS (2)
  - Cytomegalovirus infection reactivation [Recovering/Resolving]
  - Neuropathy peripheral [Recovered/Resolved]

NARRATIVE: CASE EVENT DATE: 20211227
